FAERS Safety Report 10934403 (Version 1)
Quarter: 2015Q1

REPORT INFORMATION
  Report Type: Spontaneous
  Country: US (occurrence: US)
  Receive Date: 20150320
  Receipt Date: 20150320
  Transmission Date: 20150721
  Serious: Yes (Hospitalization)
  Sender: FDA-Public Use
  Company Number: US-BAYER-2015-030958

PATIENT
  Age: 52 Year
  Sex: Female

DRUGS (1)
  1. STIVARGA [Suspect]
     Active Substance: REGORAFENIB
     Indication: COLON CANCER
     Dosage: DAILY DOSE 160 MG FOR 21 DAYS
     Route: 048
     Dates: start: 20140808, end: 20140903

REACTIONS (2)
  - Hepatitis [None]
  - Blood pressure abnormal [None]

NARRATIVE: CASE EVENT DATE: 20140903
